FAERS Safety Report 8762564 (Version 1)
Quarter: 2012Q4

REPORT INFORMATION
  Report Type: 
  Country: US (occurrence: US)
  Receive Date: 20120830
  Receipt Date: 20120830
  Transmission Date: 20130627
  Serious: No
  Sender: FDA-Public Use
  Company Number: US-BAYER-2012-076719

PATIENT
  Age: 65 Year
  Sex: Female

DRUGS (2)
  1. CIPRO [Suspect]
     Indication: INCISION SITE INFECTION
     Dosage: 750 mg, BID
     Dates: start: 201205, end: 20120618
  2. CLINDAMYCIN [Concomitant]
     Dosage: UNK
     Dates: start: 20120330

REACTIONS (7)
  - Paraesthesia [Not Recovered/Not Resolved]
  - Hypoaesthesia [Not Recovered/Not Resolved]
  - Paraesthesia [Not Recovered/Not Resolved]
  - Hypoaesthesia [Not Recovered/Not Resolved]
  - Dyspnoea [Not Recovered/Not Resolved]
  - Palpitations [Not Recovered/Not Resolved]
  - Rash generalised [Not Recovered/Not Resolved]
